FAERS Safety Report 18506272 (Version 8)
Quarter: 2021Q3

REPORT INFORMATION
  Report Type: Report from Study
  Country: CO (occurrence: CO)
  Receive Date: 20201116
  Receipt Date: 20210923
  Transmission Date: 20211014
  Serious: Yes (Hospitalization, Other)
  Sender: FDA-Public Use
  Company Number: CO-TAKEDA-CO201701754

PATIENT
  Age: 36 Year
  Sex: Male
  Weight: 75 kg

DRUGS (3)
  1. DANAZOL. [Concomitant]
     Active Substance: DANAZOL
     Indication: BACK PAIN
     Dosage: 200 MG, 1X/DAY:QD
     Route: 048
     Dates: start: 20161212
  2. ICATIBANT [Suspect]
     Active Substance: ICATIBANT ACETATE
     Indication: HEREDITARY ANGIOEDEMA
     Dosage: 30 MILLIGRAM,MAXIMUM 3 SYRINGES IN 24 HOURS
     Route: 058
  3. ICATIBANT [Suspect]
     Active Substance: ICATIBANT ACETATE
     Indication: HEREDITARY ANGIOEDEMA
     Dosage: 30 MILLIGRAM,MAXIMUM 3 SYRINGES IN 24 HOURS
     Route: 058

REACTIONS (3)
  - Loss of consciousness [Recovering/Resolving]
  - Brain oedema [Recovering/Resolving]
  - Seizure [Recovering/Resolving]

NARRATIVE: CASE EVENT DATE: 20210226
